FAERS Safety Report 5371521-2 (Version None)
Quarter: 2007Q2

REPORT INFORMATION
  Report Type: 
  Country: None (occurrence: None)
  Receive Date: 20070618
  Receipt Date: 20070208
  Transmission Date: 20071010
  Serious: Yes (Other)
  Sender: FDA-Public Use
  Company Number: PHEH2007US01477

PATIENT
  Age: 75 Year
  Sex: Female

DRUGS (2)
  1. GLEEVEC [Suspect]
     Indication: CHRONIC MYELOID LEUKAEMIA
     Dosage: ORAL; 500 MG, QD, ORAL
     Route: 048
     Dates: end: 20060101
  2. GLEEVEC [Suspect]
     Indication: CHRONIC MYELOID LEUKAEMIA
     Dosage: ORAL; 500 MG, QD, ORAL
     Route: 048
     Dates: start: 20061221

REACTIONS (4)
  - BLOOD COUNT ABNORMAL [None]
  - EMOTIONAL DISORDER [None]
  - FATIGUE [None]
  - TREATMENT NONCOMPLIANCE [None]
